FAERS Safety Report 5210021-7 (Version None)
Quarter: 2006Q4

REPORT INFORMATION
  Report Type: 
  Country: None (occurrence: None)
  Receive Date: 20061127
  Receipt Date: 20060614
  Transmission Date: 20070319
  Serious: Yes (Other)
  Sender: FDA-Public Use
  Company Number: CHPA2006US05907

PATIENT
  Age: 85 Year
  Sex: Male
  Weight: 90.7 kg

DRUGS (4)
  1. NICOTINE [Suspect]
     Indication: BALANCE DISORDER
     Dosage: 7 MG, ONCE/SINGLE, TRANSDERMAL
     Route: 062
     Dates: start: 20060613, end: 20060614
  2. CARBIDOPA W/LEVODOPA (CARBIDOPA, LEVODOPA( [Concomitant]
  3. POTASSIUM CHLORIDE [Concomitant]
  4. PREVACID [Concomitant]

REACTIONS (2)
  - BLOOD PRESSURE INCREASED [None]
  - MALAISE [None]
